FAERS Safety Report 10879671 (Version 1)
Quarter: 2015Q1

REPORT INFORMATION
  Report Type: Spontaneous
  Country: US (occurrence: None)
  Receive Date: 20150224
  Receipt Date: 20150224
  Transmission Date: 20150721
  Serious: No
  Sender: FDA-Public Use
  Company Number: None

PATIENT
  Age: 7 Year
  Sex: Male
  Weight: 24 kg

DRUGS (15)
  1. HEPARIN [Concomitant]
     Active Substance: HEPARIN SODIUM
  2. LACTULOSE. [Concomitant]
     Active Substance: LACTULOSE
  3. NALOXONE [Concomitant]
     Active Substance: NALOXONE
  4. FENTANYL. [Concomitant]
     Active Substance: FENTANYL
  5. LISINOPRIL. [Concomitant]
     Active Substance: LISINOPRIL
  6. ECULIZUMAB [Suspect]
     Active Substance: ECULIZUMAB
     Indication: THROMBOTIC MICROANGIOPATHY
     Dosage: 600 MG, Q72H, INTRAVENOUS
     Route: 042
  7. MEGESTEROL [Concomitant]
  8. ONDANSETRON [Concomitant]
     Active Substance: ONDANSETRON
  9. PENICILLIN V [Concomitant]
     Active Substance: PENICILLIN V
  10. ACETAMINOHEN [Concomitant]
  11. DIPHENHYDRAMINE [Concomitant]
     Active Substance: DIPHENHYDRAMINE
  12. PENTAMIDINE [Concomitant]
     Active Substance: PENTAMIDINE
  13. ALBUTEROL. [Concomitant]
     Active Substance: ALBUTEROL
  14. LANSOPRAZOLE. [Concomitant]
     Active Substance: LANSOPRAZOLE
  15. NORMAL SALINE [Concomitant]
     Active Substance: SODIUM CHLORIDE

REACTIONS (1)
  - Priapism [None]

NARRATIVE: CASE EVENT DATE: 20150218
